FAERS Safety Report 24024887 (Version 2)
Quarter: 2024Q3

REPORT INFORMATION
  Report Type: Report from Study
  Country: CN (occurrence: CN)
  Receive Date: 20240628
  Receipt Date: 20240710
  Transmission Date: 20241016
  Serious: No
  Sender: ROCHE
  Company Number: CN-ROCHE-3294966

PATIENT
  Age: 67 Year
  Sex: Male
  Weight: 70.0 kg

DRUGS (2)
  1. ALECENSA [Suspect]
     Active Substance: ALECTINIB HYDROCHLORIDE
     Indication: Lung neoplasm malignant
     Dosage: CAPSULES, 150 MG 224 CAPSULES
     Route: 048
     Dates: start: 20201231
  2. INSULIN NOS [Concomitant]
     Active Substance: INSULIN NOS
     Indication: Type 2 diabetes mellitus

REACTIONS (3)
  - Blood glucose increased [Not Recovered/Not Resolved]
  - Hepatic function abnormal [Recovered/Resolved]
  - Blood glucose increased [Not Recovered/Not Resolved]
